FAERS Safety Report 4327792-4 (Version None)
Quarter: 2004Q1

REPORT INFORMATION
  Report Type: 
  Country: None (occurrence: None)
  Receive Date: 20040325
  Receipt Date: 20040311
  Transmission Date: 20041129
  Serious: Yes (Hospitalization)
  Sender: FDA-Public Use
  Company Number: 2004-BP-00629BP

PATIENT
  Age: 43 Year
  Sex: Female
  Weight: 66.7 kg

DRUGS (4)
  1. CATAPRES-TTS-3 [Suspect]
     Indication: HYPERTENSION
     Dosage: 0.4 MG (5 MG, 2 PATCHES ONCE WEEKLY), TO
     Route: 061
     Dates: start: 19970101, end: 20040101
  2. ADVAIR (SERETIDE MITE) [Concomitant]
  3. SINGULAIR [Concomitant]
  4. ALBUTEROL [Concomitant]

REACTIONS (11)
  - BRONCHOSPASM [None]
  - DERMATITIS ALLERGIC [None]
  - DIZZINESS [None]
  - DYSPNOEA [None]
  - GAIT DISTURBANCE [None]
  - HYPERSENSITIVITY [None]
  - PALPITATIONS [None]
  - PHARMACEUTICAL PRODUCT COMPLAINT [None]
  - SWELLING FACE [None]
  - TREMOR [None]
  - VISION BLURRED [None]
